FAERS Safety Report 5423230-9 (Version None)
Quarter: 2007Q3

REPORT INFORMATION
  Report Type: 
  Country: None (occurrence: None)
  Receive Date: 20070730
  Receipt Date: 20070122
  Transmission Date: 20080115
  Serious: Yes (Other)
  Sender: FDA-Public Use
  Company Number: 200710078BWH

PATIENT
  Sex: Female

DRUGS (5)
  1. AVELOX [Suspect]
     Indication: UPPER RESPIRATORY TRACT INFECTION
     Dosage: ONCE, ORAL
     Route: 048
     Dates: start: 20061231, end: 20070109
  2. CLARITIN-D [Suspect]
     Dosage: ONCE, ORAL
     Route: 048
     Dates: start: 20070101
  3. SUDAFED 12 HOUR [Suspect]
     Dates: start: 20070103, end: 20070109
  4. PEPCID [Concomitant]
  5. ALLEGRA [Concomitant]

REACTIONS (4)
  - DYSPNOEA [None]
  - HEART RATE INCREASED [None]
  - MUSCLE TWITCHING [None]
  - SLEEP DISORDER [None]
